FAERS Safety Report 5500223-4 (Version None)
Quarter: 2007Q4

REPORT INFORMATION
  Report Type: 
  Country: None (occurrence: None)
  Receive Date: 20071025
  Receipt Date: 20071022
  Transmission Date: 20080405
  Serious: Yes (Hospitalization)
  Sender: FDA-Public Use
  Company Number: 2007-GWUS-0554

PATIENT
  Age: 70 Year
  Sex: Male

DRUGS (1)
  1. ALDARA [Suspect]
     Dosage: TOPICAL
     Route: 061
     Dates: start: 20070101

REACTIONS (13)
  - ADVERSE DRUG REACTION [None]
  - APPLICATION SITE DISCOLOURATION [None]
  - APPLICATION SITE ERYTHEMA [None]
  - APPLICATION SITE IRRITATION [None]
  - APPLICATION SITE SCAB [None]
  - HYPERCOAGULATION [None]
  - INAPPROPRIATE SCHEDULE OF DRUG ADMINISTRATION [None]
  - OVERDOSE [None]
  - SKIN DISCOLOURATION [None]
  - SKIN NECROSIS [None]
  - THROMBOSIS [None]
  - VASCULITIS [None]
  - VENOUS THROMBOSIS [None]
